FAERS Safety Report 10342076 (Version 2)
Quarter: 2014Q3

REPORT INFORMATION
  Report Type: Report from Study
  Country: ES (occurrence: ES)
  Receive Date: 20140725
  Receipt Date: 20140807
  Transmission Date: 20150326
  Serious: Yes (Death)
  Sender: FDA-Public Use
  Company Number: ES-BAYER-2014-109366

PATIENT
  Age: 57 Year
  Sex: Male

DRUGS (11)
  1. TACROLIMUS. [Concomitant]
     Active Substance: TACROLIMUS
     Dosage: .1 MG, QD
     Dates: start: 20100715
  2. LEVOTHROID [Concomitant]
     Active Substance: LEVOTHYROXINE SODIUM
     Dosage: 100 ?G, QD
     Dates: start: 20100715
  3. ADIRO 100 MG GASTRO-RESISTANT TABLETS, 30 TABLETS [Suspect]
     Active Substance: ASPIRIN
     Dosage: 100 ?G, QD
     Route: 048
     Dates: start: 20100824
  4. PEGINTRON [Suspect]
     Active Substance: PEGINTERFERON ALFA-2B
     Dosage: 100 ?G, OW
     Route: 058
     Dates: start: 20130930, end: 20140103
  5. IDEOS [Concomitant]
     Active Substance: CALCIUM CARBONATE\CHOLECALCIFEROL
     Dosage: 1250 MG, QD
     Route: 048
     Dates: start: 20100824
  6. LANTUS [Concomitant]
     Active Substance: INSULIN GLARGINE
     Dosage: 10 IU, QD
     Route: 058
     Dates: start: 20100723
  7. INCIVO [Suspect]
     Active Substance: TELAPREVIR
     Dosage: 1125 MG, BID
     Route: 048
     Dates: start: 20130930, end: 20131223
  8. RIBAVIRIN. [Suspect]
     Active Substance: RIBAVIRIN
     Dosage: 400 MG, BID
     Route: 048
     Dates: start: 20130930, end: 20140103
  9. ARANESP [Concomitant]
     Active Substance: DARBEPOETIN ALFA
     Dosage: 80 ?G, OW
     Dates: start: 20131202
  10. ANAGASTRA [Concomitant]
     Active Substance: PANTOPRAZOLE SODIUM
     Dosage: 40 MG, QD
     Route: 048
     Dates: start: 20100715
  11. SUMIAL [Concomitant]
     Active Substance: PROPRANOLOL HYDROCHLORIDE
     Dosage: 10 MG, BID
     Route: 048
     Dates: start: 20100816

REACTIONS (1)
  - Anaemia [Fatal]

NARRATIVE: CASE EVENT DATE: 20131205
